FAERS Safety Report 10948323 (Version 2)
Quarter: 2015Q2

REPORT INFORMATION
  Report Type: Spontaneous
  Country: US (occurrence: US)
  Receive Date: 20150324
  Receipt Date: 20150511
  Transmission Date: 20150821
  Serious: No
  Sender: FDA-Public Use
  Company Number: US-009507513-1503USA003968

PATIENT
  Age: 26 Year
  Sex: Female
  Weight: 93.42 kg

DRUGS (1)
  1. NEXPLANON [Suspect]
     Active Substance: ETONOGESTREL
     Indication: CONTRACEPTION
     Dosage: 1 ROD, THREE YEARS
     Route: 059
     Dates: start: 201402, end: 20150304

REACTIONS (3)
  - Device breakage [Recovered/Resolved]
  - Product quality issue [Unknown]
  - Amenorrhoea [Unknown]

NARRATIVE: CASE EVENT DATE: 20150220
